FAERS Safety Report 5088593-5 (Version None)
Quarter: 2006Q3

REPORT INFORMATION
  Report Type: 
  Country: None (occurrence: None)
  Receive Date: 20060731
  Receipt Date: 20051121
  Transmission Date: 20061208
  Serious: Yes (Hospitalization, Other)
  Sender: FDA-Public Use
  Company Number: US200512000171

PATIENT
  Age: 69 Year
  Sex: Female

DRUGS (2)
  1. FORTEO [Suspect]
     Dates: start: 20050301
  2. FORTEO [Concomitant]

REACTIONS (10)
  - CONSTIPATION [None]
  - DIZZINESS [None]
  - LETHARGY [None]
  - MUSCULOSKELETAL STIFFNESS [None]
  - NAUSEA [None]
  - NECK PAIN [None]
  - PAIN IN EXTREMITY [None]
  - SYNCOPE [None]
  - VAGUS NERVE DISORDER [None]
  - VOMITING [None]
